FAERS Safety Report 8977645 (Version 1)
Quarter: 2012Q4

REPORT INFORMATION
  Report Type: 
  Country: IT (occurrence: IT)
  Receive Date: 20121220
  Receipt Date: 20121220
  Transmission Date: 20130627
  Serious: Yes (Life-Threatening)
  Sender: FDA-Public Use
  Company Number: IT-GLAXOSMITHKLINE-B0853222A

PATIENT
  Age: 91 Year
  Sex: Male

DRUGS (5)
  1. SEREUPIN [Suspect]
     Indication: PRODUCT USED FOR UNKNOWN INDICATION
     Dosage: 10MG per day
     Route: 048
     Dates: start: 20120913, end: 20120913
  2. AKINETON [Suspect]
     Indication: PRODUCT USED FOR UNKNOWN INDICATION
     Dosage: 4MG per day
     Route: 048
     Dates: start: 20120913, end: 20120913
  3. LEPONEX [Suspect]
     Indication: ACCIDENTAL EXPOSURE TO PRODUCT
     Dosage: 100MG per day
     Route: 048
     Dates: start: 20120913, end: 20120913
  4. CHLORPROMAZINE HYDROCHLORIDE [Suspect]
     Indication: PRODUCT USED FOR UNKNOWN INDICATION
     Dosage: 5DROP per day
     Route: 048
     Dates: start: 20120913, end: 20120913
  5. SERENASE [Suspect]

REACTIONS (4)
  - Cardio-respiratory arrest [Not Recovered/Not Resolved]
  - Accidental exposure to product [Unknown]
  - Bradycardia [Not Recovered/Not Resolved]
  - Somnolence [Not Recovered/Not Resolved]
